FAERS Safety Report 5847896-4 (Version None)
Quarter: 2008Q3

REPORT INFORMATION
  Report Type: 
  Country: None (occurrence: None)
  Receive Date: 20080814
  Receipt Date: 20080814
  Transmission Date: 20090109
  Serious: Yes (Other)
  Sender: FDA-Public Use
  Company Number: None

PATIENT
  Sex: Male
  Weight: 70.3075 kg

DRUGS (2)
  1. ROGAINE (FOR MEN) [Suspect]
     Indication: ALOPECIA
     Dosage: SINGLE USAGE  1 TOP
     Route: 061
     Dates: start: 20080812, end: 20080812
  2. ROGAINE (FOR MEN) [Suspect]
     Indication: PROPHYLAXIS
     Dosage: SINGLE USAGE  1 TOP
     Route: 061
     Dates: start: 20080812, end: 20080812

REACTIONS (2)
  - APPLICATION SITE PRURITUS [None]
  - APPLICATION SITE VESICLES [None]
